FAERS Safety Report 8042942-4 (Version None)
Quarter: 2012Q1

REPORT INFORMATION
  Report Type: 
  Country: None (occurrence: None)
  Receive Date: 20120112
  Receipt Date: 20120109
  Transmission Date: 20120608
  Serious: Yes (Hospitalization)
  Sender: FDA-Public Use
  Company Number: FR-PFIZER INC-HQWYE277319JUL05

PATIENT
  Age: 56 Year
  Sex: Male

DRUGS (8)
  1. DIGOXIN [Suspect]
     Indication: ATRIAL FIBRILLATION
     Dosage: 0.3 MG, 1X/DAY
     Route: 048
     Dates: start: 20050608, end: 20050614
  2. DIGOXIN [Suspect]
     Indication: ATRIAL FLUTTER
  3. CORDARONE [Suspect]
     Indication: ATRIAL FIBRILLATION
     Dosage: 400 MG, 1X/DAY
     Route: 048
     Dates: start: 20050608, end: 20050614
  4. VFEND [Suspect]
     Indication: ASPERGILLOSIS
     Dosage: 200 MG, 2X/DAY
     Route: 048
     Dates: start: 20050609, end: 20050614
  5. RULID [Suspect]
     Dosage: 150 MG, 2X/DAY
     Route: 048
     Dates: start: 20050611, end: 20050614
  6. LEVOTHYROXINE SODIUM [Concomitant]
     Dosage: UNK
     Route: 048
     Dates: start: 20050608
  7. CORDARONE [Suspect]
     Indication: ATRIAL FLUTTER
  8. AMOXICILLIN TRIHYDRATE [Concomitant]
     Dosage: UNK
     Route: 042
     Dates: start: 20050608

REACTIONS (4)
  - TORSADE DE POINTES [None]
  - ELECTROCARDIOGRAM QT PROLONGED [None]
  - HYPOKALAEMIA [None]
  - BRADYCARDIA [None]
